FAERS Safety Report 4596489-8 (Version None)
Quarter: 2005Q1

REPORT INFORMATION
  Report Type: 
  Country: None (occurrence: None)
  Receive Date: 20050302
  Receipt Date: 20050218
  Transmission Date: 20050727
  Serious: Yes (Hospitalization)
  Sender: FDA-Public Use
  Company Number: FR-SANOFI-SYNTHELABO-A02200500436

PATIENT
  Age: 57 Year
  Sex: Female

DRUGS (5)
  1. KETOPROFEN [Suspect]
     Indication: DRUG USE FOR UNKNOWN INDICATION
     Dosage: UNK
     Route: 048
     Dates: start: 19940101
  2. CORTANCYL [Suspect]
     Indication: DRUG USE FOR UNKNOWN INDICATION
     Dosage: UNK
     Route: 048
     Dates: start: 19940101
  3. PLAQUENIL [Suspect]
     Indication: SYSTEMIC LUPUS ERYTHEMATOSUS
     Dosage: 600 MG
     Route: 048
     Dates: start: 19940101
  4. PLAQUENIL [Suspect]
     Dosage: 600 MG
     Route: 048
     Dates: start: 19940101
  5. METHOTREXATE [Suspect]
     Indication: SYSTEMIC LUPUS ERYTHEMATOSUS
     Route: 030
     Dates: start: 19940101, end: 20040415

REACTIONS (2)
  - B-CELL LYMPHOMA [None]
  - LYMPHOMA [None]
